FAERS Safety Report 7020434-9 (Version None)
Quarter: 2010Q3

REPORT INFORMATION
  Report Type: 
  Country: None (occurrence: None)
  Receive Date: 20100927
  Receipt Date: 20100920
  Transmission Date: 20110219
  Serious: Yes (Hospitalization, Other)
  Sender: FDA-Public Use
  Company Number: JHP201000241

PATIENT
  Age: 54 Year
  Sex: Male

DRUGS (8)
  1. DANTRIUM [Suspect]
     Indication: MULTIPLE SCLEROSIS
     Dosage: 100 MG, QID, ORAL
     Route: 048
  2. DANTRIUM [Suspect]
     Indication: MUSCULOSKELETAL STIFFNESS
     Dosage: 100 MG, QID, ORAL
     Route: 048
  3. BACLOFEN [Suspect]
  4. TIZANIDINE HCL [Suspect]
  5. ESCITALOPRAM [Concomitant]
  6. ATENOLOL [Concomitant]
  7. QUININE (QUININE HYDROCHLORIDE) [Concomitant]
  8. ANTIBIOTICS [Concomitant]

REACTIONS (5)
  - HYPERHIDROSIS [None]
  - INCORRECT DOSE ADMINISTERED [None]
  - PNEUMONIA ASPIRATION [None]
  - RESPIRATORY RATE INCREASED [None]
  - TACHYCARDIA [None]
